FAERS Safety Report 8592522-7 (Version None)
Quarter: 2012Q3

REPORT INFORMATION
  Report Type: 
  Country: None (occurrence: None)
  Receive Date: 20120814
  Receipt Date: 20120802
  Transmission Date: 20120928
  Serious: No
  Sender: FDA-Public Use
  Company Number: US-ASTRAZENECA-2012SE54467

PATIENT
  Age: 63 Year
  Sex: Female

DRUGS (4)
  1. ATACAND HCT [Suspect]
     Indication: HYPERTENSION
     Dosage: 32/25MG ONE TABLET DAILY
     Route: 048
  2. CRESTOR [Suspect]
     Route: 048
  3. METFORMIN HCL [Concomitant]
     Route: 048
  4. ATACAND [Suspect]
     Route: 048

REACTIONS (7)
  - HYPERTENSION [None]
  - POLYURIA [None]
  - CELLULITIS [None]
  - BLOOD CHOLESTEROL INCREASED [None]
  - OEDEMA PERIPHERAL [None]
  - TYPE 2 DIABETES MELLITUS [None]
  - WEIGHT INCREASED [None]
